FAERS Safety Report 22294851 (Version 5)
Quarter: 2024Q1

REPORT INFORMATION
  Report Type: Report from Study
  Country: US (occurrence: US)
  Receive Date: 20230508
  Receipt Date: 20240312
  Transmission Date: 20240410
  Serious: Yes (Other)
  Sender: FDA-Public Use
  Company Number: US-SHIRE-US202004622

PATIENT
  Age: 68 Year
  Sex: Male
  Weight: 82 kg

DRUGS (40)
  1. HUMAN IMMUNOGLOBULIN G [Suspect]
     Active Substance: HUMAN IMMUNOGLOBULIN G
     Indication: Immunodeficiency common variable
     Dosage: UNK UNK, 1/WEEK
     Route: 058
     Dates: start: 202003
  2. HUMAN IMMUNOGLOBULIN G [Suspect]
     Active Substance: HUMAN IMMUNOGLOBULIN G
     Indication: Primary immunodeficiency syndrome
     Dosage: 20 GRAM, 1/WEEK
     Route: 058
     Dates: start: 20220119
  3. HUMAN IMMUNOGLOBULIN G [Suspect]
     Active Substance: HUMAN IMMUNOGLOBULIN G
     Indication: Immune system disorder
     Dosage: 20 GRAM, 1/WEEK
     Route: 058
     Dates: start: 20220130
  4. PREDNISONE [Suspect]
     Active Substance: PREDNISONE
     Indication: Product used for unknown indication
     Dosage: UNK
     Route: 048
  5. ACETAMINOPHEN [Concomitant]
     Active Substance: ACETAMINOPHEN
     Dosage: UNK
     Route: 065
  6. VITAMIN C [Concomitant]
     Active Substance: ASCORBIC ACID
     Dosage: UNK
     Route: 065
  7. SIMVASTATIN [Concomitant]
     Active Substance: SIMVASTATIN
     Dosage: UNK
     Route: 065
  8. LEVOTHYROXINE SODIUM [Concomitant]
     Active Substance: LEVOTHYROXINE SODIUM
     Dosage: UNK
     Route: 065
  9. LUTEIN [Concomitant]
     Active Substance: LUTEIN
     Dosage: UNK
     Route: 065
  10. TRILEPTAL [Concomitant]
     Active Substance: OXCARBAZEPINE
     Dosage: UNK
     Route: 065
  11. ATENOLOL [Concomitant]
     Active Substance: ATENOLOL
     Dosage: UNK
     Route: 065
  12. COENZYME Q10 [Concomitant]
     Active Substance: DIETARY SUPPLEMENT\UBIDECARENONE
     Dosage: UNK
     Route: 065
  13. VITAMIN B [Concomitant]
     Active Substance: VITAMIN B
     Dosage: UNK
     Route: 065
  14. SERTRALINE HYDROCHLORIDE [Concomitant]
     Active Substance: SERTRALINE HYDROCHLORIDE
     Dosage: UNK
     Route: 065
  15. LAMICTAL [Concomitant]
     Active Substance: LAMOTRIGINE
     Dosage: UNK
     Route: 065
  16. LIDOCAINE [Concomitant]
     Active Substance: LIDOCAINE
     Dosage: UNK
     Route: 065
  17. VITAMIN D3 [Concomitant]
     Active Substance: CHOLECALCIFEROL
     Dosage: UNK
     Route: 065
  18. Omega [Concomitant]
     Dosage: UNK
     Route: 065
  19. LOMOTIL [Concomitant]
     Active Substance: ATROPINE SULFATE\DIPHENOXYLATE HYDROCHLORIDE
     Dosage: UNK
     Route: 065
  20. HERBALS [Concomitant]
     Active Substance: HERBALS
     Dosage: UNK
     Route: 065
  21. Zinc lozenges [Concomitant]
     Dosage: UNK
     Route: 065
  22. TEA [Concomitant]
     Active Substance: TEA LEAF
     Dosage: UNK
     Route: 065
  23. HOODIA [Concomitant]
     Dosage: UNK
     Route: 065
  24. EPIPEN [Concomitant]
     Active Substance: EPINEPHRINE
     Dosage: UNK
     Route: 065
  25. LIDOCAINE\PRILOCAINE [Concomitant]
     Active Substance: LIDOCAINE\PRILOCAINE
     Route: 065
  26. FLUOCINONIDE [Concomitant]
     Active Substance: FLUOCINONIDE
     Dosage: UNK
     Route: 065
  27. CLOBETASOL [Concomitant]
     Active Substance: CLOBETASOL
     Dosage: UNK
     Route: 065
  28. PROMETHAZINE HYDROCHLORIDE [Concomitant]
     Active Substance: PROMETHAZINE HYDROCHLORIDE
     Dosage: UNK
     Route: 065
  29. AMANTADINE [Concomitant]
     Active Substance: AMANTADINE
     Dosage: UNK
     Route: 065
  30. DIPHENHYDRAMINE HYDROCHLORIDE [Concomitant]
     Active Substance: DIPHENHYDRAMINE HYDROCHLORIDE
     Dosage: UNK
     Route: 065
  31. GEODON [Concomitant]
     Active Substance: ZIPRASIDONE HYDROCHLORIDE\ZIPRASIDONE MESYLATE
     Dosage: UNK
     Route: 065
  32. FENOFIBRATE [Concomitant]
     Active Substance: FENOFIBRATE
     Dosage: UNK
     Route: 065
  33. ASPIRIN [Concomitant]
     Active Substance: ASPIRIN
     Dosage: UNK
     Route: 065
  34. TAZORAC [Concomitant]
     Active Substance: TAZAROTENE
     Dosage: UNK
     Route: 065
  35. DIPHENHYDRAMINE [Concomitant]
     Active Substance: DIPHENHYDRAMINE
     Dosage: UNK
     Route: 065
  36. NASACORT [Concomitant]
     Active Substance: TRIAMCINOLONE ACETONIDE
     Dosage: UNK
     Route: 065
  37. EPINEPHRINE [Concomitant]
     Active Substance: EPINEPHRINE
     Dosage: UNK
     Route: 065
  38. AZELASTINE HYDROCHLORIDE [Concomitant]
     Active Substance: AZELASTINE HYDROCHLORIDE
     Dosage: UNK
     Route: 065
  39. Echinacea goldenseal [Concomitant]
     Dosage: UNK
     Route: 065
  40. LORATADINE [Concomitant]
     Active Substance: LORATADINE

REACTIONS (16)
  - Lymphoma [Unknown]
  - Retinal tear [Unknown]
  - Inability to afford medication [Unknown]
  - Viral infection [Recovering/Resolving]
  - Allergy to plants [Unknown]
  - Sensitive skin [Unknown]
  - Mania [Unknown]
  - Product distribution issue [Unknown]
  - Infusion site discharge [Unknown]
  - Influenza [Recovering/Resolving]
  - Infusion site haemorrhage [Unknown]
  - Eye swelling [Unknown]
  - Urticaria [Unknown]
  - Sinusitis [Recovering/Resolving]
  - Inappropriate schedule of product administration [Unknown]
  - Product dose omission issue [Recovering/Resolving]

NARRATIVE: CASE EVENT DATE: 20210711
